FAERS Safety Report 4864090-4 (Version None)
Quarter: 2005Q4

REPORT INFORMATION
  Report Type: 
  Country: None (occurrence: None)
  Receive Date: 20051222
  Receipt Date: 20051019
  Transmission Date: 20060501
  Serious: Yes (Other)
  Sender: FDA-Public Use
  Company Number: US-GLAXOSMITHKLINE-A0578767A

PATIENT
  Age: 70 Year
  Sex: Male
  Weight: 105.5 kg

DRUGS (6)
  1. ADVAIR DISKUS 250/50 [Suspect]
     Indication: ASTHMA
     Dosage: 1PUFF TWICE PER DAY
     Route: 055
     Dates: start: 20051011, end: 20051018
  2. TOPROL-XL [Concomitant]
     Dosage: 50MG PER DAY
     Route: 048
  3. ASPIRIN [Concomitant]
     Dosage: 325MG PER DAY
     Route: 048
  4. MULTI-VITAMIN [Concomitant]
     Dosage: 1TAB PER DAY
     Route: 048
  5. HALCION [Concomitant]
     Dosage: .5MG PER DAY
     Route: 048
  6. ALBUTEROL [Concomitant]
     Dosage: 1PUFF PER DAY
     Route: 055

REACTIONS (6)
  - ARRHYTHMIA [None]
  - BALANCE DISORDER [None]
  - CARDIAC FIBRILLATION [None]
  - DIZZINESS [None]
  - HEART RATE INCREASED [None]
  - LOSS OF CONSCIOUSNESS [None]
